FAERS Safety Report 13385478 (Version 1)
Quarter: 2017Q1

REPORT INFORMATION
  Report Type: Report from Study
  Country: None (occurrence: US)
  Receive Date: 20170330
  Receipt Date: 20170330
  Transmission Date: 20170429
  Serious: Yes (Hospitalization)
  Sender: FDA-Public Use
  Company Number: US-ABBVIE-17K-163-1922260-00

PATIENT
  Sex: Female

DRUGS (3)
  1. HUMIRA [Suspect]
     Active Substance: ADALIMUMAB
     Dosage: DAY 15
     Route: 058
     Dates: start: 2016, end: 2016
  2. HUMIRA [Suspect]
     Active Substance: ADALIMUMAB
     Dosage: DAY 29
     Route: 058
     Dates: start: 201608
  3. HUMIRA [Suspect]
     Active Substance: ADALIMUMAB
     Indication: CROHN^S DISEASE
     Dosage: DAY 1
     Route: 058
     Dates: start: 2016, end: 2016

REACTIONS (14)
  - Nausea [Unknown]
  - Depressed mood [Unknown]
  - Paraesthesia [Unknown]
  - Systemic lupus erythematosus [Unknown]
  - Crohn^s disease [Unknown]
  - Vomiting [Unknown]
  - Insomnia [Unknown]
  - Pyrexia [Unknown]
  - Hypoaesthesia [Unknown]
  - Anxiety [Unknown]
  - Decreased appetite [Unknown]
  - Activities of daily living impaired [Unknown]
  - Constipation [Unknown]
  - Limb discomfort [Unknown]

NARRATIVE: CASE EVENT DATE: 2016
